FAERS Safety Report 6304519-8 (Version None)
Quarter: 2009Q3

REPORT INFORMATION
  Report Type: 
  Country: None (occurrence: None)
  Receive Date: 20090811
  Receipt Date: 20090805
  Transmission Date: 20100115
  Serious: Yes (Life-Threatening, Hospitalization, Other)
  Sender: FDA-Public Use
  Company Number: JP-BAYER-200812862BYL

PATIENT
  Age: 77 Year
  Sex: Female
  Weight: 40 kg

DRUGS (18)
  1. NEXAVAR [Suspect]
     Indication: RENAL CELL CARCINOMA STAGE IV
     Dosage: TOTAL DAILY DOSE: 200 MG  UNIT DOSE: 200 MG
     Route: 048
     Dates: start: 20080901, end: 20080922
  2. NEXAVAR [Suspect]
     Dosage: AS USED: 400 MG  UNIT DOSE: 200 MG
     Route: 048
     Dates: start: 20080728, end: 20080831
  3. MOBIC [Concomitant]
     Dosage: AS USED: 10 MG
     Route: 048
     Dates: start: 20080728
  4. ALOSENN [Concomitant]
     Dosage: AS USED: 1 G
     Route: 048
     Dates: start: 20080728
  5. AMOBAN [Concomitant]
     Dosage: AS USED: 7.5 MG
     Route: 048
     Dates: start: 20080728
  6. PLETAL [Concomitant]
     Dosage: AS USED: 100 MG
     Route: 048
     Dates: start: 20080728
  7. AMLODIN [Concomitant]
     Dosage: AS USED: 5 MG
     Route: 048
     Dates: start: 20080728
  8. GASTER D [Concomitant]
     Dosage: TOTAL DAILY DOSE: 20 MG
     Route: 048
     Dates: start: 20080728
  9. CODEINE PHOSPHATE [Concomitant]
     Dosage: AS USED: 0.6 G
     Route: 048
     Dates: start: 20080924
  10. ADONA [Concomitant]
     Dosage: AS USED: 30 MG
     Route: 048
     Dates: start: 20080925
  11. TRANSAMIN [Concomitant]
     Dosage: AS USED: 750 MG
     Route: 048
     Dates: start: 20080925
  12. VEEN-F [Concomitant]
     Dosage: AS USED: 1500 ML  UNIT DOSE: 500 ML
     Route: 042
     Dates: start: 20080929, end: 20081008
  13. CEFMETAZON [Concomitant]
     Dosage: AS USED: 2 G
     Route: 042
     Dates: start: 20081001, end: 20081002
  14. AMLODIN OD [Concomitant]
     Dosage: TOTAL DAILY DOSE: 5 MG  UNIT DOSE: 5 MG
     Route: 048
     Dates: start: 20081004, end: 20081011
  15. RISPERDAL [Concomitant]
     Dosage: AS USED: 1 MG
     Route: 048
     Dates: start: 20081004, end: 20081011
  16. DAI-KENCHU-TO [Concomitant]
     Dosage: AS USED: 7.5 G
     Route: 048
     Dates: start: 20081004, end: 20081018
  17. SULBACILLIN [Concomitant]
     Dosage: AS USED: 1.5 G
     Route: 042
     Dates: start: 20081026, end: 20081030
  18. BFLUID [Concomitant]
     Dosage: AS USED: 1500 ML
     Route: 042
     Dates: start: 20081026, end: 20081031

REACTIONS (10)
  - ALOPECIA [None]
  - ATELECTASIS [None]
  - CEREBRAL INFARCTION [None]
  - DIARRHOEA [None]
  - HYPERTHYROIDISM [None]
  - INTESTINAL OBSTRUCTION [None]
  - MALAISE [None]
  - METASTASES TO CENTRAL NERVOUS SYSTEM [None]
  - RASH [None]
  - STOMATITIS [None]
